FAERS Safety Report 5981193-1 (Version None)
Quarter: 2008Q4

REPORT INFORMATION
  Report Type: 
  Country: None (occurrence: None)
  Receive Date: 20081205
  Receipt Date: 20081127
  Transmission Date: 20090506
  Serious: Yes (Hospitalization, Other)
  Sender: FDA-Public Use
  Company Number: B0547453A

PATIENT
  Age: 50 Year
  Sex: Female
  Weight: 69 kg

DRUGS (8)
  1. LAPATINIB [Suspect]
     Indication: BREAST CANCER
     Dosage: 1500MG PER DAY
     Route: 048
     Dates: start: 20080829
  2. PACLITAXEL [Suspect]
     Indication: BREAST CANCER
     Route: 042
     Dates: start: 20081010
  3. ESOMEPRAZOLE MAGNESIUM [Concomitant]
     Indication: PROPHYLAXIS
     Dosage: 40MG PER DAY
     Route: 048
     Dates: start: 20081010
  4. FLUCONAZOLE [Concomitant]
     Dosage: 200MG UNKNOWN
     Route: 042
     Dates: start: 20081118, end: 20081118
  5. VITAMIN B [Concomitant]
  6. ZANTAC [Concomitant]
  7. METHYLPREDNISOLONE 16MG TAB [Concomitant]
     Indication: PROPHYLAXIS
     Dosage: 125MG UNKNOWN
     Route: 042
     Dates: start: 20081010
  8. METHYLPREDNISOLONE 16MG TAB [Concomitant]
     Dosage: 16MG PER DAY
     Route: 048
     Dates: start: 20081008

REACTIONS (12)
  - ABDOMINAL DISCOMFORT [None]
  - ABDOMINAL PAIN [None]
  - ALANINE AMINOTRANSFERASE INCREASED [None]
  - ASPARTATE AMINOTRANSFERASE INCREASED [None]
  - DRY SKIN [None]
  - HERPES SIMPLEX [None]
  - MASTICATION DISORDER [None]
  - MUCOSAL INFLAMMATION [None]
  - PANCREATITIS [None]
  - PYREXIA [None]
  - URINARY TRACT INFECTION [None]
  - VAGINAL INFLAMMATION [None]
